FAERS Safety Report 7708934-7 (Version None)
Quarter: 2011Q3

REPORT INFORMATION
  Report Type: 
  Country: None (occurrence: None)
  Receive Date: 20110825
  Receipt Date: 20110823
  Transmission Date: 20111222
  Serious: Yes (Other)
  Sender: FDA-Public Use
  Company Number: JP-PFIZER INC-2011195519

PATIENT
  Sex: Female

DRUGS (2)
  1. LYRICA [Suspect]
     Dosage: 100 MG/DAY
     Route: 048
     Dates: start: 20110815, end: 20110820
  2. LYRICA [Suspect]
     Dosage: 2 DF/DAY
     Route: 048
     Dates: start: 20110806, end: 20110814

REACTIONS (5)
  - WEIGHT INCREASED [None]
  - DIARRHOEA [None]
  - DIZZINESS [None]
  - LOCAL SWELLING [None]
  - SWELLING FACE [None]
